FAERS Safety Report 5411748-4 (Version None)
Quarter: 2007Q3

REPORT INFORMATION
  Report Type: 
  Country: None (occurrence: None)
  Receive Date: 20070813
  Receipt Date: 20070802
  Transmission Date: 20080115
  Serious: Yes (Hospitalization)
  Sender: FDA-Public Use
  Company Number: PHEH2007US09326

PATIENT
  Age: 74 Year
  Sex: Female

DRUGS (2)
  1. OCTREOTIDE ACETATE [Suspect]
     Indication: VIPOMA
     Dosage: 30 MG, QMO 2 INJECTIONS
     Dates: start: 20070501, end: 20070620
  2. SANDOSTATIN [Suspect]
     Indication: LIPOMA
     Dosage: 3 INJECTIONS, QD
     Route: 058

REACTIONS (2)
  - OEDEMA [None]
  - UNEVALUABLE EVENT [None]
